FAERS Safety Report 25215160 (Version 1)
Quarter: 2025Q2

REPORT INFORMATION
  Report Type: Report from Study
  Country: DE (occurrence: DE)
  Receive Date: 20250418
  Receipt Date: 20250418
  Transmission Date: 20250716
  Serious: Yes (Other)
  Sender: NOVARTIS
  Company Number: DE-002147023-NVSC2020DE312163

PATIENT
  Sex: Female
  Weight: 71 kg

DRUGS (6)
  1. KISQALI [Suspect]
     Active Substance: RIBOCICLIB SUCCINATE
     Indication: Breast cancer
     Dosage: 400 MG, QD (DAILY DOSE) (SCHEMA 21 DAYS INTAKE, 7 DAYS PAUSE)
     Route: 048
     Dates: start: 20200507, end: 20200826
  2. LETROZOLE [Suspect]
     Active Substance: LETROZOLE
     Indication: Breast cancer
     Dosage: 2.5 MG, QD (DAILY DOSE)
     Route: 048
     Dates: start: 20200507, end: 20200826
  3. AFINITOR [Suspect]
     Active Substance: EVEROLIMUS
     Indication: Breast cancer
     Dosage: 5 MG, QD
     Route: 048
     Dates: start: 20220525, end: 20220620
  4. AFINITOR [Suspect]
     Active Substance: EVEROLIMUS
     Dosage: 7.5 MG, QD
     Route: 048
     Dates: start: 20220621, end: 20220718
  5. AFINITOR [Suspect]
     Active Substance: EVEROLIMUS
     Dosage: 5 MG, QD
     Route: 048
     Dates: start: 20220719, end: 20220801
  6. AFINITOR [Suspect]
     Active Substance: EVEROLIMUS
     Dosage: 7.5 MG, QD
     Route: 048
     Dates: start: 20220802, end: 20230117

REACTIONS (18)
  - Neutropenia [Recovered/Resolved]
  - Neutropenia [Not Recovered/Not Resolved]
  - Coronavirus infection [Recovered/Resolved]
  - Rash [Recovering/Resolving]
  - Back pain [Recovering/Resolving]
  - Oral mucosal blistering [Recovering/Resolving]
  - Cough [Recovered/Resolved]
  - Diarrhoea [Recovered/Resolved]
  - Fall [Recovering/Resolving]
  - Fatigue [Not Recovered/Not Resolved]
  - Feeling cold [Recovering/Resolving]
  - Papule [Not Recovered/Not Resolved]
  - Nausea [Recovered/Resolved]
  - Acne pustular [Recovering/Resolving]
  - Tongue discomfort [Recovering/Resolving]
  - Neck pain [Recovering/Resolving]
  - Pain [Recovering/Resolving]
  - Off label use [Unknown]

NARRATIVE: CASE EVENT DATE: 20200604
